FAERS Safety Report 12840756 (Version 2)
Quarter: 2016Q4

REPORT INFORMATION
  Report Type: Spontaneous
  Country: IT (occurrence: IT)
  Receive Date: 20161012
  Receipt Date: 20161019
  Transmission Date: 20170207
  Serious: Yes (Other)
  Sender: FDA-Public Use
  Company Number: IT-PFIZER INC-2016469607

PATIENT
  Age: 71 Year
  Sex: Male

DRUGS (5)
  1. LIPOSOMAL DOXORUBICIN HCL [Suspect]
     Active Substance: DOXORUBICIN HYDROCHLORIDE
     Indication: DIFFUSE LARGE B-CELL LYMPHOMA STAGE IV
     Dosage: 50MG/M2 ON DAY 1; 6 CYCLES, 3-WEEK INTERVALS BETWEEN CYCLES
     Dates: start: 20100216, end: 20100415
  2. PREDNISONE. [Concomitant]
     Active Substance: PREDNISONE
     Indication: DIFFUSE LARGE B-CELL LYMPHOMA STAGE IV
     Dosage: 75 MG, DAYS 1-5; 6 CYCLES; 3-WEEK INTERVALS BETWEEN CYCLES
     Route: 048
     Dates: start: 20100216
  3. RITUXIMAB [Concomitant]
     Active Substance: RITUXIMAB
     Indication: DIFFUSE LARGE B-CELL LYMPHOMA STAGE IV
     Dosage: 375 MG/M2 ON DAY 1; 6 CYCLES; 3-WEEK INTERVALS BETWEEN CYCLES
     Dates: start: 20100216
  4. CYCLOPHOSPHAMIDE. [Concomitant]
     Active Substance: CYCLOPHOSPHAMIDE
     Indication: DIFFUSE LARGE B-CELL LYMPHOMA STAGE IV
     Dosage: 750 MG/M2 ON DAY 1; 6 CYCLES; 3-WEEK INTERVALS BETWEEN CYCLES
     Dates: start: 20100216
  5. VINCRISTINE [Concomitant]
     Active Substance: VINCRISTINE
     Indication: DIFFUSE LARGE B-CELL LYMPHOMA STAGE IV
     Dosage: 2 MG ON DAY 1; 6 CYCLES; 3-WEEK INTERVALS BETWEEN CYCLES
     Dates: start: 20100216

REACTIONS (1)
  - Ejection fraction decreased [Recovering/Resolving]

NARRATIVE: CASE EVENT DATE: 20100415
